FAERS Safety Report 8521245-5 (Version None)
Quarter: 2012Q3

REPORT INFORMATION
  Report Type: 
  Country: None (occurrence: None)
  Receive Date: 20120719
  Receipt Date: 20120709
  Transmission Date: 20120928
  Serious: Yes (Other)
  Sender: FDA-Public Use
  Company Number: US-ROCHE-1087119

PATIENT
  Age: 63 Year
  Sex: Female

DRUGS (3)
  1. MYCOPHENOLATE MOFETIL [Suspect]
     Indication: PANNICULITIS
  2. PREDNISOLONE [Concomitant]
     Indication: PANNICULITIS
  3. PREDNISOLONE [Concomitant]
     Dosage: DOSE REDUCED

REACTIONS (1)
  - RASH MORBILLIFORM [None]
